FAERS Safety Report 9154151 (Version 7)
Quarter: 2016Q4

REPORT INFORMATION
  Report Type: Report from Study
  Country: NL (occurrence: NL)
  Receive Date: 20130311
  Receipt Date: 20161117
  Transmission Date: 20170207
  Serious: Yes (Hospitalization)
  Sender: FDA-Public Use
  Company Number: NL-JNJFOC-20121011749

PATIENT
  Age: 62 Year
  Sex: Female
  Weight: 72.3 kg

DRUGS (18)
  1. NISITA (SALINE) [Concomitant]
     Route: 065
  2. MESALAZINE [Concomitant]
     Active Substance: MESALAMINE
     Route: 065
  3. THYRAX [Concomitant]
     Active Substance: LEVOTHYROXINE
     Route: 065
  4. CIPROFLOXACIN. [Concomitant]
     Active Substance: CIPROFLOXACIN
     Route: 065
  5. CEFTRIAXONE. [Concomitant]
     Active Substance: CEFTRIAXONE
     Route: 065
  6. REMICADE [Suspect]
     Active Substance: INFLIXIMAB
     Indication: COLITIS ULCERATIVE
     Route: 042
     Dates: start: 20120306, end: 20120306
  7. PARACETAMOL [Concomitant]
     Active Substance: ACETAMINOPHEN
     Route: 065
  8. ESOMEPRAZOLE [Concomitant]
     Active Substance: ESOMEPRAZOLE
     Route: 065
  9. NATRIUM LEVOTHYROXINE [Concomitant]
     Route: 065
  10. VIMOVO [Concomitant]
     Active Substance: ESOMEPRAZOLE MAGNESIUM\NAPROXEN
     Route: 065
  11. OLSALAZINE [Concomitant]
     Active Substance: OLSALAZINE
     Route: 065
  12. REMICADE [Suspect]
     Active Substance: INFLIXIMAB
     Indication: COLITIS ULCERATIVE
     Route: 042
     Dates: start: 20100920
  13. XYLOMETAZOLINE [Concomitant]
     Active Substance: XYLOMETAZOLINE
     Route: 065
  14. ZOPICLON [Concomitant]
     Active Substance: ZOPICLONE
     Route: 065
  15. FRAXIPARINE [Concomitant]
     Active Substance: NADROPARIN CALCIUM
  16. TRAMADOL RETARD [Concomitant]
     Active Substance: TRAMADOL
     Route: 065
  17. ALPRAZOLAM. [Concomitant]
     Active Substance: ALPRAZOLAM
     Dosage: 0, 25 MG
     Route: 065
  18. TRAMADOL RETARD [Concomitant]
     Active Substance: TRAMADOL
     Route: 065

REACTIONS (8)
  - Pneumonia pneumococcal [Recovered/Resolved]
  - Phlebitis [Recovered/Resolved]
  - Leukopenia [Recovered/Resolved]
  - Atrial fibrillation [Recovered/Resolved]
  - Renal impairment [Recovered/Resolved]
  - Respiratory failure [Recovered/Resolved]
  - Otitis media [Recovered/Resolved]
  - Colitis ulcerative [Recovered/Resolved]

NARRATIVE: CASE EVENT DATE: 20120408
